FAERS Safety Report 9116117 (Version 1)
Quarter: 2013Q1

REPORT INFORMATION
  Report Type: Spontaneous
  Country: AU (occurrence: AU)
  Receive Date: 20130225
  Receipt Date: 20130225
  Transmission Date: 20140127
  Serious: Yes (Hospitalization)
  Sender: FDA-Public Use
  Company Number: AU-TEVA-388153ISR

PATIENT
  Age: 8 Decade
  Sex: Male

DRUGS (1)
  1. AZILECT [Suspect]
     Route: 048

REACTIONS (2)
  - Pain [Unknown]
  - Muscle spasms [Unknown]
